FAERS Safety Report 11267722 (Version 1)
Quarter: 2015Q3

REPORT INFORMATION
  Report Type: Spontaneous
  Country: DE (occurrence: DE)
  Receive Date: 20150713
  Receipt Date: 20150713
  Transmission Date: 20151125
  Serious: Yes (Death, Other)
  Sender: FDA-Public Use
  Company Number: DE-GILEAD-2015-0163076

PATIENT
  Age: 62 Year
  Sex: Female

DRUGS (1)
  1. ZYDELIG [Suspect]
     Active Substance: IDELALISIB
     Indication: B-CELL LYMPHOMA
     Route: 065

REACTIONS (4)
  - Blood bilirubin increased [Fatal]
  - Chronic hepatitis B [Fatal]
  - B-cell lymphoma [Fatal]
  - Unevaluable event [Fatal]
